FAERS Safety Report 4667088-4 (Version None)
Quarter: 2005Q2

REPORT INFORMATION
  Report Type: 
  Country: None (occurrence: None)
  Receive Date: 20050520
  Receipt Date: 20050412
  Transmission Date: 20051028
  Serious: Yes (Other)
  Sender: FDA-Public Use
  Company Number: PHBS2005BE05268

PATIENT
  Age: 67 Year
  Sex: Male

DRUGS (3)
  1. THALIDOMIDE [Concomitant]
     Route: 065
     Dates: start: 20040401
  2. DEXAMETHASONE [Concomitant]
     Route: 065
     Dates: start: 20040401, end: 20040901
  3. ZOMETA [Suspect]
     Dosage: UNK, UNK
     Route: 065
     Dates: start: 20030110

REACTIONS (4)
  - ACTINOMYCOSIS [None]
  - OSTEITIS [None]
  - OSTEONECROSIS [None]
  - PAIN IN JAW [None]
